FAERS Safety Report 22270262 (Version 1)
Quarter: 2023Q2

REPORT INFORMATION
  Report Type: Spontaneous
  Country: US (occurrence: None)
  Receive Date: 20230428
  Receipt Date: 20230428
  Transmission Date: 20230722
  Serious: No
  Sender: FDA-Public Use
  Company Number: None

PATIENT
  Age: 66 Year
  Sex: Female
  Weight: 56.7 kg

DRUGS (3)
  1. TRULICITY [Suspect]
     Active Substance: DULAGLUTIDE
     Indication: Glycosylated haemoglobin increased
     Dosage: OTHER QUANTITY : 1 INJECTION(S);?OTHER FREQUENCY : ONCE A WEEK;?
     Route: 061
     Dates: start: 20230411, end: 20230411
  2. BACLOFEN [Concomitant]
     Active Substance: BACLOFEN
  3. METHOCARBAMOL [Concomitant]
     Active Substance: METHOCARBAMOL

REACTIONS (2)
  - Hypophagia [None]
  - Decreased appetite [None]

NARRATIVE: CASE EVENT DATE: 20230411
